FAERS Safety Report 15430295 (Version 3)
Quarter: 2019Q1

REPORT INFORMATION
  Report Type: Spontaneous
  Country: US (occurrence: US)
  Receive Date: 20180926
  Receipt Date: 20190131
  Transmission Date: 20190417
  Serious: Yes (Hospitalization, Other)
  Sender: FDA-Public Use
  Company Number: US-DSJP-DSU-2017-140524

PATIENT

DRUGS (4)
  1. BENICAR [Suspect]
     Active Substance: OLMESARTAN MEDOXOMIL
     Indication: PRODUCT USED FOR UNKNOWN INDICATION
     Dosage: 20 MG, QD
     Route: 048
     Dates: start: 20140101
  2. BENICAR HCT [Suspect]
     Active Substance: HYDROCHLOROTHIAZIDE\OLMESARTAN MEDOXOMIL
     Indication: HYPERTENSION
     Dosage: 40/25 MG, QD
     Route: 048
     Dates: start: 20140101
  3. BENICAR HCT [Suspect]
     Active Substance: HYDROCHLOROTHIAZIDE\OLMESARTAN MEDOXOMIL
     Dosage: 20-12.5 MG, QD
     Route: 048
  4. BENICAR [Suspect]
     Active Substance: OLMESARTAN MEDOXOMIL
     Dosage: 40 MG, QD

REACTIONS (8)
  - Sprue-like enteropathy [Recovering/Resolving]
  - Hiatus hernia [Unknown]
  - Gastrooesophageal reflux disease [Not Recovered/Not Resolved]
  - Irritable bowel syndrome [Unknown]
  - Haemorrhoids [Unknown]
  - Helicobacter test positive [Not Recovered/Not Resolved]
  - Chronic kidney disease [Unknown]
  - Large intestine polyp [Unknown]

NARRATIVE: CASE EVENT DATE: 20120329
